FAERS Safety Report 11596860 (Version 3)
Quarter: 2015Q4

REPORT INFORMATION
  Report Type: Spontaneous
  Country: US (occurrence: US)
  Receive Date: 20151006
  Receipt Date: 20151123
  Transmission Date: 20160304
  Serious: Yes (Hospitalization, Other)
  Sender: FDA-Public Use
  Company Number: US-ACTELION-A-NJ2015-124889

PATIENT
  Age: 32 Year
  Sex: Female

DRUGS (4)
  1. TYVASO [Concomitant]
     Active Substance: TREPROSTINIL
  2. TRACLEER [Suspect]
     Active Substance: BOSENTAN
     Indication: PULMONARY ARTERIAL HYPERTENSION
     Dosage: UNK
     Route: 048
  3. SILDENAFIL. [Concomitant]
     Active Substance: SILDENAFIL
  4. ADCIRCA [Concomitant]
     Active Substance: TADALAFIL

REACTIONS (9)
  - Cough [Unknown]
  - Hypotension [Unknown]
  - Dyspnoea [Unknown]
  - Dehydration [Unknown]
  - Cardiac arrest [Unknown]
  - Myocardial infarction [Unknown]
  - Syncope [Unknown]
  - Apnoea [Unknown]
  - Loss of consciousness [Unknown]
